FAERS Safety Report 19794700 (Version 1)
Quarter: 2021Q3

REPORT INFORMATION
  Report Type: Report from Study
  Country: CO (occurrence: CO)
  Receive Date: 20210906
  Receipt Date: 20210906
  Transmission Date: 20211014
  Serious: Yes (Death, Other)
  Sender: FDA-Public Use
  Company Number: NVSC2021CO192130

PATIENT
  Age: 82 Year
  Sex: Male

DRUGS (1)
  1. REVOLADE [Suspect]
     Active Substance: ELTROMBOPAG OLAMINE
     Indication: IMMUNE THROMBOCYTOPENIA
     Dosage: 50 MG, QD
     Route: 048
     Dates: start: 20210724

REACTIONS (12)
  - Insomnia [Unknown]
  - Feeling hot [Unknown]
  - Arthralgia [Unknown]
  - Fall [Unknown]
  - Abdominal pain upper [Unknown]
  - Back pain [Unknown]
  - Depressed mood [Unknown]
  - Gait disturbance [Unknown]
  - Infarction [Fatal]
  - Thrombosis [Unknown]
  - Limb discomfort [Unknown]
  - Pain in extremity [Unknown]

NARRATIVE: CASE EVENT DATE: 20210830
